FAERS Safety Report 8297628-8 (Version None)
Quarter: 2012Q2

REPORT INFORMATION
  Report Type: 
  Country: None (occurrence: None)
  Receive Date: 20120419
  Receipt Date: 20120416
  Transmission Date: 20120825
  Serious: Yes (Hospitalization)
  Sender: FDA-Public Use
  Company Number: PHHO2012CN001997

PATIENT
  Sex: Female
  Weight: 53 kg

DRUGS (7)
  1. VELCADE [Suspect]
     Indication: MULTIPLE MYELOMA
     Dosage: CODE NOT BROKEN
     Route: 048
     Dates: start: 20111206
  2. COMPARATOR DEXAMETHASONE [Suspect]
     Dosage: 20 MG, QW4
     Route: 048
     Dates: start: 20111206
  3. PLACEBO [Suspect]
     Indication: MULTIPLE MYELOMA
     Dosage: CODE NOT BROKEN
     Route: 048
     Dates: start: 20111206
  4. COMPARATOR BORTEZOMIB [Suspect]
     Indication: MULTIPLE MYELOMA
     Dosage: 2 MG, BIW
     Route: 042
     Dates: start: 20111206
  5. BLINDED FORTECORTIN [Suspect]
     Indication: MULTIPLE MYELOMA
     Dosage: CODE NOT BROKEN
     Route: 048
     Dates: start: 20111206
  6. BLINDED NO TREATMENT RECEIVED [Suspect]
     Indication: MULTIPLE MYELOMA
     Dosage: CODE NOT BROKEN
     Route: 048
     Dates: start: 20111206
  7. BLINDED LBH589 [Suspect]
     Indication: MULTIPLE MYELOMA
     Dosage: CODE NOT BROKEN
     Route: 048
     Dates: start: 20111206

REACTIONS (1)
  - PNEUMONITIS [None]
